FAERS Safety Report 9827311 (Version 1)
Quarter: 2013Q4

REPORT INFORMATION
  Report Type: Spontaneous
  Country: US (occurrence: None)
  Receive Date: 20131112
  Receipt Date: 20131112
  Transmission Date: 20140711
  Serious: Yes (Other)
  Sender: FDA-Public Use
  Company Number: US-013261

PATIENT
  Age: 65 Year
  Sex: Male
  Weight: 104.33 kg

DRUGS (4)
  1. PICO-SALAX (NOT SPECIFIED) [Suspect]
     Indication: BOWEL PREPARATION
     Dosage: (TOOK FIRST DOSE AT 1600 HOURS (4PM) AND SECOND DOSE AT 2000 HOURS (8PM) )
     Dates: start: 20131003, end: 20131003
  2. AMIODARONE [Concomitant]
  3. DAILY VITAMINS [Concomitant]
  4. CORTISONE [Concomitant]

REACTIONS (1)
  - Drug ineffective [None]
